FAERS Safety Report 10569681 (Version 1)
Quarter: 2014Q4

REPORT INFORMATION
  Report Type: Spontaneous
  Country: BE (occurrence: BE)
  Receive Date: 20141107
  Receipt Date: 20141107
  Transmission Date: 20150529
  Serious: Yes (Other)
  Sender: FDA-Public Use
  Company Number: BE-JNJFOC-20141100280

PATIENT
  Sex: Male

DRUGS (2)
  1. DAKTARIN 2% [Suspect]
     Active Substance: MICONAZOLE NITRATE
     Route: 061
  2. DAKTARIN 2% [Suspect]
     Active Substance: MICONAZOLE NITRATE
     Indication: PRODUCT USED FOR UNKNOWN INDICATION
     Route: 061
     Dates: start: 201409

REACTIONS (5)
  - Skin irritation [Unknown]
  - Expired product administered [Unknown]
  - Dry skin [Unknown]
  - Psoriasis [Unknown]
  - Wrong technique in drug usage process [Unknown]

NARRATIVE: CASE EVENT DATE: 201409
